FAERS Safety Report 21964759 (Version 2)
Quarter: 2023Q1

REPORT INFORMATION
  Report Type: Spontaneous
  Country: CN (occurrence: CN)
  Receive Date: 20230207
  Receipt Date: 20230214
  Transmission Date: 20230417
  Serious: Yes (Other)
  Sender: FDA-Public Use
  Company Number: CN-FreseniusKabi-FK202301319

PATIENT
  Age: 92 Year
  Sex: Male
  Weight: 55 kg

DRUGS (2)
  1. EGG PHOSPHOLIPIDS\GLYCERIN\MEDIUM-CHAIN TRIGLYCERIDES\SOYBEAN OIL [Suspect]
     Active Substance: EGG PHOSPHOLIPIDS\GLYCERIN\MEDIUM-CHAIN TRIGLYCERIDES\SOYBEAN OIL
     Indication: Feeding disorder
     Dosage: 250 MG, INJECTION
     Route: 041
     Dates: start: 20230113, end: 20230113
  2. Piperacillin Sodium and Tazobactam Sodium for Injection [Concomitant]
     Indication: Pneumonia
     Dosage: 4.50 GM, POWDER FOR INJECTION
     Route: 041
     Dates: start: 20230111, end: 20230113

REACTIONS (4)
  - Atrial fibrillation [Recovering/Resolving]
  - Myocardial infarction [Recovering/Resolving]
  - Infusion related reaction [Recovering/Resolving]
  - Shock [Recovering/Resolving]

NARRATIVE: CASE EVENT DATE: 20230113
